APPROVED DRUG PRODUCT: LITHIUM CARBONATE
Active Ingredient: LITHIUM CARBONATE
Strength: 300MG
Dosage Form/Route: CAPSULE;ORAL
Application: A076121 | Product #001
Applicant: ABLE LABORATORIES INC
Approved: Sep 27, 2001 | RLD: No | RS: No | Type: DISCN